FAERS Safety Report 5809513-9 (Version None)
Quarter: 2008Q3

REPORT INFORMATION
  Report Type: 
  Country: None (occurrence: None)
  Receive Date: 20080715
  Receipt Date: 20080702
  Transmission Date: 20090109
  Serious: Yes (Hospitalization)
  Sender: FDA-Public Use
  Company Number: FR-ELI_LILLY_AND_COMPANY-FR200807000488

PATIENT
  Sex: Male

DRUGS (16)
  1. GEMZAR [Suspect]
     Indication: EXTRANODAL MARGINAL ZONE B-CELL LYMPHOMA (MALT TYPE)
     Dosage: 1800 MG, UNKNOWN
     Route: 042
     Dates: start: 20080512
  2. ELOXATIN [Concomitant]
     Indication: EXTRANODAL MARGINAL ZONE B-CELL LYMPHOMA (MALT TYPE)
     Dosage: 180 MG, UNKNOWN
     Route: 042
     Dates: start: 20080512
  3. MABTHERA [Concomitant]
     Indication: EXTRANODAL MARGINAL ZONE B-CELL LYMPHOMA (MALT TYPE)
     Dosage: 650 MG, UNKNOWN
     Route: 042
     Dates: start: 20080211
  4. RAMIPRIL [Concomitant]
     Dosage: 1.25 MG, UNKNOWN
     Route: 065
  5. BACTRIM /01680801/ [Concomitant]
     Dosage: UNK, UNKNOWN
     Route: 065
  6. ZOPHREN [Concomitant]
     Dosage: UNK, UNKNOWN
     Route: 065
     Dates: start: 20080211
  7. PROZAC [Concomitant]
     Dosage: UNK, UNKNOWN
     Route: 065
     Dates: start: 20080301
  8. DEROXAT [Concomitant]
     Dosage: UNK, UNKNOWN
     Route: 065
     Dates: start: 20080301
  9. EFFEXOR [Concomitant]
     Dosage: UNK, UNKNOWN
     Route: 065
     Dates: start: 20080401
  10. XANAX [Concomitant]
     Dosage: UNK, UNKNOWN
     Route: 065
  11. VALACYCLOVIR HCL [Concomitant]
     Dosage: UNK, UNKNOWN
     Route: 065
  12. FOLIC ACID [Concomitant]
     Dosage: UNK, UNKNOWN
     Route: 065
  13. ZYLORIC [Concomitant]
     Dosage: UNK, UNKNOWN
     Route: 065
  14. MOPRAL [Concomitant]
     Dosage: UNK, UNKNOWN
     Route: 065
  15. ASPEGIC 325 [Concomitant]
     Dosage: UNK, UNKNOWN
     Route: 065
  16. POLARAMINE [Concomitant]
     Dosage: UNK, UNKNOWN
     Route: 065

REACTIONS (1)
  - PANCREATITIS ACUTE [None]
